FAERS Safety Report 5191505-7 (Version None)
Quarter: 2006Q4

REPORT INFORMATION
  Report Type: 
  Country: None (occurrence: None)
  Receive Date: 20061226
  Receipt Date: 20061020
  Transmission Date: 20070319
  Serious: Yes (Hospitalization)
  Sender: FDA-Public Use
  Company Number: IT-SANOFI-SYNTHELABO-A06200600354

PATIENT
  Sex: Male

DRUGS (4)
  1. TRIATEC [Concomitant]
     Indication: CORONARY ANGIOPLASTY
     Route: 048
     Dates: start: 20060801, end: 20061008
  2. ASPIRIN [Concomitant]
     Indication: DRUG USE FOR UNKNOWN INDICATION
     Route: 048
     Dates: start: 20060801, end: 20061008
  3. TORVAST [Suspect]
     Indication: CORONARY ANGIOPLASTY
     Route: 048
     Dates: start: 20060801, end: 20061008
  4. PLAVIX [Suspect]
     Indication: CORONARY ANGIOPLASTY
     Route: 048
     Dates: start: 20060801, end: 20061008

REACTIONS (9)
  - DIARRHOEA [None]
  - DRUG RASH WITH EOSINOPHILIA AND SYSTEMIC SYMPTOMS [None]
  - NAUSEA [None]
  - OLIGURIA [None]
  - RASH [None]
  - RASH PRURITIC [None]
  - VOMITING [None]
  - WHITE BLOOD CELL COUNT INCREASED [None]
  - WHITE BLOOD CELL DISORDER [None]
